FAERS Safety Report 5446260-X (Version None)
Quarter: 2007Q3

REPORT INFORMATION
  Report Type: 
  Country: None (occurrence: None)
  Receive Date: 20070731
  Receipt Date: 20060816
  Transmission Date: 20080115
  Serious: Yes (Other)
  Sender: FDA-Public Use
  Company Number: US-2006-007053

PATIENT
  Age: 44 Year
  Sex: Female
  Weight: 47 kg

DRUGS (5)
  1. MAGNEVIST [Suspect]
     Indication: ANGIOGRAM
     Dosage: 40 ML, 1 DOSE, INTRAVENOUS
     Route: 042
     Dates: start: 20060308, end: 20060308
  2. MAGNEVIST [Suspect]
  3. MAGNEVIST [Suspect]
  4. PROVEX CV (QUERCETIN, VITIS VINIFERA LEAF EXTRACT, GINKGO BILOBA, VACC [Concomitant]
  5. CALCIUM (CALCIUM) [Concomitant]

REACTIONS (2)
  - HEADACHE [None]
  - THROMBOPHLEBITIS [None]
